FAERS Safety Report 26088971 (Version 1)
Quarter: 2025Q4

REPORT INFORMATION
  Report Type: Spontaneous
  Country: US (occurrence: US)
  Receive Date: 20251125
  Receipt Date: 20251125
  Transmission Date: 20260118
  Serious: No
  Sender: SANOFI AVENTIS
  Company Number: US-SA-2025SA345711

PATIENT
  Sex: Female
  Weight: 78.64 kg

DRUGS (3)
  1. DUPIXENT [Suspect]
     Active Substance: DUPILUMAB
     Indication: Nasal polyps
     Dosage: 300 MG, QOW
     Route: 058
  2. XYZAL [Concomitant]
     Active Substance: LEVOCETIRIZINE DIHYDROCHLORIDE
     Dosage: UNK
  3. SINGULAIR [Concomitant]
     Active Substance: MONTELUKAST SODIUM
     Dosage: UNK

REACTIONS (12)
  - Hyposmia [Unknown]
  - Hypogeusia [Unknown]
  - Facial pain [Unknown]
  - Ear pain [Unknown]
  - Facial discomfort [Unknown]
  - Ear discomfort [Unknown]
  - Rhinorrhoea [Unknown]
  - Condition aggravated [Unknown]
  - Sneezing [Unknown]
  - Cough [Unknown]
  - Upper-airway cough syndrome [Unknown]
  - Incorrect dose administered [Unknown]
